FAERS Safety Report 9234532 (Version 1)
Quarter: 2013Q2

REPORT INFORMATION
  Report Type: Spontaneous
  Country: FR (occurrence: FR)
  Receive Date: 20130416
  Receipt Date: 20130416
  Transmission Date: 20140414
  Serious: Yes (Hospitalization)
  Sender: FDA-Public Use
  Company Number: FR-GLAXOSMITHKLINE-B0882255A

PATIENT
  Age: 57 Year
  Sex: Male

DRUGS (12)
  1. ZOPHREN [Suspect]
     Indication: PREMEDICATION
     Route: 065
     Dates: start: 20130311, end: 20130313
  2. 5-FU [Suspect]
     Indication: CHEMOTHERAPY
     Dosage: 2200MG PER DAY
     Route: 042
     Dates: start: 20130311, end: 20130312
  3. EMEND [Suspect]
     Indication: PREMEDICATION
     Route: 048
     Dates: start: 20130311, end: 20130313
  4. DOCETAXEL [Suspect]
     Indication: CHEMOTHERAPY
     Dosage: 74MG PER DAY
     Route: 042
     Dates: start: 20130311, end: 20130311
  5. SOLUPRED [Suspect]
     Indication: PREMEDICATION
     Dosage: 60MG PER DAY
     Route: 065
     Dates: start: 20130311, end: 20130313
  6. CISPLATIN [Concomitant]
     Indication: CHEMOTHERAPY
     Dosage: 75MG PER DAY
     Route: 042
     Dates: start: 20130222, end: 20130222
  7. KREDEX [Concomitant]
     Dosage: 12.5MG TWICE PER DAY
     Route: 048
     Dates: start: 201302
  8. EUPANTOL [Concomitant]
     Dosage: 40MG TWICE PER DAY
     Route: 048
  9. PRIMPERAN [Concomitant]
     Dosage: 10MG AS REQUIRED
     Route: 048
     Dates: start: 20130220
  10. KARDEGIC [Concomitant]
     Dosage: 75MG PER DAY
     Route: 048
  11. TAHOR [Concomitant]
     Dosage: 10MG PER DAY
     Route: 048
  12. TRIATEC [Concomitant]
     Dosage: 5MG PER DAY
     Route: 048
     Dates: start: 201302

REACTIONS (8)
  - Encephalopathy [Recovered/Resolved]
  - Vomiting [Recovered/Resolved]
  - Altered state of consciousness [Recovered/Resolved]
  - Confusional state [Recovered/Resolved]
  - Coma scale abnormal [Recovered/Resolved]
  - Thrombocytosis [Recovered/Resolved]
  - Leukocytosis [Recovered/Resolved]
  - Memory impairment [Recovered/Resolved]
